FAERS Safety Report 6373450-4 (Version None)
Quarter: 2009Q3

REPORT INFORMATION
  Report Type: 
  Country: None (occurrence: None)
  Receive Date: 20090924
  Receipt Date: 20090320
  Transmission Date: 20100115
  Serious: No
  Sender: FDA-Public Use
  Company Number: US-ASTRAZENECA-2009UW07204

PATIENT
  Age: 346 Month
  Sex: Female

DRUGS (2)
  1. SEROQUEL [Suspect]
     Route: 048
     Dates: start: 20090115
  2. PAXIL [Concomitant]

REACTIONS (6)
  - ABDOMINAL DISTENSION [None]
  - DRUG INEFFECTIVE [None]
  - HYPERSOMNIA [None]
  - SKIN DISORDER [None]
  - WEIGHT INCREASED [None]
  - WEIGHT LOSS POOR [None]
